FAERS Safety Report 6710705-5 (Version None)
Quarter: 2010Q2

REPORT INFORMATION
  Report Type: 
  Country: None (occurrence: None)
  Receive Date: 20100504
  Receipt Date: 20100504
  Transmission Date: 20101027
  Serious: Yes (Hospitalization)
  Sender: FDA-Public Use
  Company Number: None

PATIENT
  Age: 6 Year
  Sex: Female
  Weight: 21.7727 kg

DRUGS (1)
  1. CHILDREN'S MOTRIN [Suspect]
     Indication: ANALGESIC THERAPY
     Dosage: 2TSP EVERY 8HRS PO
     Route: 048
     Dates: start: 20100313, end: 20100314

REACTIONS (4)
  - HYPERSENSITIVITY [None]
  - LIP SWELLING [None]
  - OEDEMA MOUTH [None]
  - SWELLING FACE [None]
